FAERS Safety Report 8392591-3 (Version None)
Quarter: 2012Q2

REPORT INFORMATION
  Report Type: 
  Country: None (occurrence: None)
  Receive Date: 20120529
  Receipt Date: 20120516
  Transmission Date: 20120825
  Serious: Yes (Other)
  Sender: FDA-Public Use
  Company Number: DE-FRI-1000030720

PATIENT
  Sex: Female

DRUGS (4)
  1. FENTANYL-100 [Concomitant]
     Indication: ANALGESIC THERAPY
     Dates: start: 20120514
  2. MEMANTINE HCL [Suspect]
     Indication: DEMENTIA
     Dosage: 20 MG
     Dates: start: 20111020
  3. BUPRENORPHINE [Concomitant]
     Indication: ANALGESIC THERAPY
     Dates: end: 20120514
  4. NOVAMINOSULFON [Concomitant]
     Indication: ANALGESIC THERAPY

REACTIONS (2)
  - LIVER INJURY [None]
  - RENAL IMPAIRMENT [None]
